FAERS Safety Report 11146180 (Version 1)
Quarter: 2015Q2

REPORT INFORMATION
  Report Type: Spontaneous
  Country: CH (occurrence: CH)
  Receive Date: 20150528
  Receipt Date: 20150528
  Transmission Date: 20150821
  Serious: Yes (Hospitalization, Other)
  Sender: FDA-Public Use
  Company Number: CH-TEVA-565320ISR

PATIENT
  Age: 86 Year
  Sex: Male

DRUGS (9)
  1. PRADIF T 0.4 MG [Concomitant]
     Dosage: .4 MILLIGRAM DAILY;
     Route: 048
  2. OMEZOL-MEPHA MT 20 MG [Concomitant]
     Dosage: 20 MILLIGRAM DAILY;
     Route: 048
  3. VOLTAREN 50 MG [Concomitant]
     Route: 048
  4. CITALOPRAM-MEPHA 20 DISPERSIBLE [Suspect]
     Active Substance: CITALOPRAM HYDROBROMIDE
     Dosage: 20 MILLIGRAM DAILY;
     Route: 048
     Dates: start: 201503, end: 20150415
  5. ASPIRIN CARDIO 100 MG [Concomitant]
     Active Substance: ASPIRIN
     Dosage: 100 MILLIGRAM DAILY;
     Route: 048
  6. NOVALGIN 500 MG [Concomitant]
     Route: 048
  7. CO-DAFALGAN [Interacting]
     Active Substance: ACETAMINOPHEN\CODEINE PHOSPHATE
     Indication: BACK PAIN
     Route: 048
     Dates: start: 201504, end: 201504
  8. AMARYL [Concomitant]
     Active Substance: GLIMEPIRIDE
     Dosage: 6 MILLIGRAM DAILY;
     Route: 048
  9. VICTOZA [Concomitant]
     Active Substance: LIRAGLUTIDE
     Dosage: 1.2 MILLIGRAM DAILY;
     Route: 058

REACTIONS (5)
  - Myoclonus [Unknown]
  - Serotonin syndrome [Unknown]
  - Altered state of consciousness [Recovered/Resolved]
  - Hallucination [Unknown]
  - Drug interaction [Unknown]

NARRATIVE: CASE EVENT DATE: 201504
